FAERS Safety Report 14531011 (Version 1)
Quarter: 2018Q1

REPORT INFORMATION
  Report Type: Spontaneous
  Country: US (occurrence: US)
  Receive Date: 20180213
  Receipt Date: 20180213
  Transmission Date: 20180509
  Serious: Yes (Life-Threatening, Other)
  Sender: FDA-Public Use
  Company Number: None

PATIENT
  Age: 29 Year
  Sex: Female
  Weight: 78.75 kg

DRUGS (3)
  1. PROAIR HFA [Concomitant]
     Active Substance: ALBUTEROL SULFATE
  2. BIOTIN MULTI VITAMINS [Concomitant]
  3. FLUOXETINE [Suspect]
     Active Substance: FLUOXETINE HYDROCHLORIDE
     Indication: DEPRESSION
     Dosage: ?          QUANTITY:30 TABLET(S);?
     Route: 048
     Dates: start: 20171117, end: 20171219

REACTIONS (13)
  - Asthma [None]
  - Feeling abnormal [None]
  - Dysphonia [None]
  - Confusional state [None]
  - Dyspepsia [None]
  - Chest pain [None]
  - Heart rate irregular [None]
  - Fatigue [None]
  - Hyperhidrosis [None]
  - Headache [None]
  - Aphonia [None]
  - Suicidal ideation [None]
  - Irritability [None]

NARRATIVE: CASE EVENT DATE: 20171126
